FAERS Safety Report 24238287 (Version 2)
Quarter: 2024Q3

REPORT INFORMATION
  Report Type: Spontaneous
  Country: US (occurrence: US)
  Receive Date: 20240822
  Receipt Date: 20240904
  Transmission Date: 20241016
  Serious: No
  Sender: PFIZER
  Company Number: US-PFIZER INC-202400240086

PATIENT
  Age: 49 Year
  Sex: Female

DRUGS (2)
  1. PREMARIN [Suspect]
     Active Substance: ESTROGENS, CONJUGATED
     Dosage: UNK
  2. CARBOMER\GLYCERIN\POLYCARBOPHIL [Suspect]
     Active Substance: CARBOMER\GLYCERIN\POLYCARBOPHIL

REACTIONS (1)
  - Drug ineffective [Unknown]
